FAERS Safety Report 7549733-9 (Version None)
Quarter: 2011Q2

REPORT INFORMATION
  Report Type: 
  Country: None (occurrence: None)
  Receive Date: 20110615
  Receipt Date: 20110608
  Transmission Date: 20111010
  Serious: Yes (Other)
  Sender: FDA-Public Use
  Company Number: US-US-EMD SERONO, INC.-7031167

PATIENT
  Sex: Female

DRUGS (9)
  1. LOVENOX [Concomitant]
     Indication: PERIPHERAL EMBOLISM
  2. COUMADIN [Concomitant]
  3. TYLENOL-500 [Concomitant]
  4. REBIF [Suspect]
     Route: 058
     Dates: start: 20110207
  5. REBIF [Suspect]
     Route: 058
     Dates: start: 20110101, end: 20110207
  6. REBIF [Suspect]
     Indication: PRODUCT USED FOR UNKNOWN INDICATION
     Route: 058
     Dates: start: 20101013, end: 20110101
  7. COUMADIN [Concomitant]
     Indication: PERIPHERAL EMBOLISM
  8. REBIF [Suspect]
     Route: 058
  9. NAPROXEN (ALEVE) [Concomitant]

REACTIONS (6)
  - GRANULOMA ANNULARE [None]
  - INJECTION SITE ERYTHEMA [None]
  - INJECTION SITE RASH [None]
  - HEADACHE [None]
  - INJECTION SITE HAEMATOMA [None]
  - INJECTION SITE PAIN [None]
